FAERS Safety Report 5774248-8 (Version None)
Quarter: 2008Q2

REPORT INFORMATION
  Report Type: 
  Country: None (occurrence: None)
  Receive Date: 20080616
  Receipt Date: 20080609
  Transmission Date: 20081010
  Serious: Yes (Death)
  Sender: FDA-Public Use
  Company Number: TW-BAYER-200819927GPV

PATIENT
  Age: 4 Year
  Sex: Female

DRUGS (3)
  1. BOKEY (ASPIRIN) [Suspect]
     Indication: DRUG USE FOR UNKNOWN INDICATION
     Route: 048
  2. HYPERTENSIVE DRUG [Suspect]
     Indication: DRUG USE FOR UNKNOWN INDICATION
     Route: 048
  3. DIABETIC DRUG [Suspect]
     Indication: DRUG USE FOR UNKNOWN INDICATION
     Route: 048

REACTIONS (6)
  - BLOOD GLUCOSE DECREASED [None]
  - BRAIN OEDEMA [None]
  - COMA [None]
  - CONVULSION [None]
  - HEPATIC FAILURE [None]
  - RENAL FAILURE [None]
